FAERS Safety Report 7733665-7 (Version None)
Quarter: 2011Q3

REPORT INFORMATION
  Report Type: 
  Country: None (occurrence: None)
  Receive Date: 20110907
  Receipt Date: 20110902
  Transmission Date: 20111222
  Serious: Yes (Hospitalization)
  Sender: FDA-Public Use
  Company Number: US-ABBOTT-11P-163-0850711-00

PATIENT
  Sex: Male
  Weight: 56.296 kg

DRUGS (11)
  1. HUMIRA [Suspect]
     Dosage: 2ND LOADING DOSE
     Route: 058
     Dates: start: 20110805, end: 20110805
  2. PREDNISONE [Concomitant]
     Indication: PRODUCT USED FOR UNKNOWN INDICATION
     Route: 048
  3. ONDANSETRON [Concomitant]
     Indication: NAUSEA
     Route: 048
  4. SUMATRIPTAN SUCCINATE [Concomitant]
     Indication: NAUSEA
     Dosage: AS NEEDED OR DAILY
     Route: 048
     Dates: end: 20110825
  5. OMEPRAZOLE [Concomitant]
     Indication: PRODUCT USED FOR UNKNOWN INDICATION
     Route: 048
  6. TRAMADOL HYDROCHLORIDE [Concomitant]
     Indication: PAIN
     Dosage: AS NEEDED OR DAILY
     Route: 048
     Dates: end: 20110825
  7. HUMIRA [Suspect]
     Indication: CROHN'S DISEASE
     Dosage: CROHN'S STARTER KIT, 1ST LOADING DOSE
     Route: 058
     Dates: start: 20110729, end: 20110729
  8. ELAVIL [Concomitant]
     Indication: PRODUCT USED FOR UNKNOWN INDICATION
     Route: 048
  9. PHENOBARBITAL TAB [Concomitant]
     Indication: PRODUCT USED FOR UNKNOWN INDICATION
  10. LIBRAX [Concomitant]
     Indication: PRODUCT USED FOR UNKNOWN INDICATION
  11. ROXICET [Concomitant]
     Indication: PAIN

REACTIONS (9)
  - INTESTINAL STENOSIS [None]
  - ABDOMINAL ADHESIONS [None]
  - NAUSEA [None]
  - SMALL INTESTINAL OBSTRUCTION [None]
  - GASTROINTESTINAL INFLAMMATION [None]
  - LARGE INTESTINAL ULCER [None]
  - APPENDICITIS [None]
  - PAIN [None]
  - COLONIC STENOSIS [None]
